FAERS Safety Report 16828974 (Version 2)
Quarter: 2019Q3

REPORT INFORMATION
  Report Type: Spontaneous
  Country: JP (occurrence: JP)
  Receive Date: 20190919
  Receipt Date: 20190923
  Transmission Date: 20191005
  Serious: Yes (Other)
  Sender: FDA-Public Use
  Company Number: JP-JNJFOC-20190918009

PATIENT
  Age: 67 Year
  Sex: Male

DRUGS (3)
  1. ITRIZOLE [Suspect]
     Active Substance: ITRACONAZOLE
     Dosage: PULSE THERAPY,UNKNOWN
     Route: 048
     Dates: start: 20190906, end: 20190912
  2. ITRIZOLE [Suspect]
     Active Substance: ITRACONAZOLE
     Indication: DERMATOPHYTOSIS OF NAIL
     Dosage: PULSE THERAPY,UNKNOWN
     Route: 048
     Dates: start: 20190706, end: 20190712
  3. ITRIZOLE [Suspect]
     Active Substance: ITRACONAZOLE
     Dosage: PULSE THERAPY,UNKNOWN
     Route: 048
     Dates: start: 20190806, end: 20190812

REACTIONS (1)
  - Anaemia [Unknown]
